FAERS Safety Report 21212361 (Version 1)
Quarter: 2022Q3

REPORT INFORMATION
  Report Type: Spontaneous
  Country: US (occurrence: US)
  Receive Date: 20220815
  Receipt Date: 20220815
  Transmission Date: 20221027
  Serious: No
  Sender: FDA-Public Use
  Company Number: US-PFIZER INC-202201056000

PATIENT
  Age: 58 Year
  Sex: Male

DRUGS (5)
  1. XELJANZ XR [Suspect]
     Active Substance: TOFACITINIB CITRATE
     Indication: Colitis ulcerative
     Dosage: 11 MG, 1X/DAY
     Route: 048
     Dates: start: 20210415
  2. XELJANZ XR [Suspect]
     Active Substance: TOFACITINIB CITRATE
     Indication: Dyshidrotic eczema
  3. XELJANZ XR [Suspect]
     Active Substance: TOFACITINIB CITRATE
     Indication: Rheumatoid arthritis
  4. PREDNISONE [Suspect]
     Active Substance: PREDNISONE
     Dosage: UNK
  5. ENTYVIO [Suspect]
     Active Substance: VEDOLIZUMAB
     Dosage: UNK, (EVERY 6 WEEKS)

REACTIONS (2)
  - Product dose omission in error [Unknown]
  - Pain [Unknown]
